FAERS Safety Report 5807111-4 (Version None)
Quarter: 2008Q3

REPORT INFORMATION
  Report Type: 
  Country: None (occurrence: None)
  Receive Date: 20080711
  Receipt Date: 20080703
  Transmission Date: 20090109
  Serious: Yes (Hospitalization)
  Sender: FDA-Public Use
  Company Number: GB-ABBOTT-08P-167-0461232-00

PATIENT
  Age: 46 Year
  Sex: Male

DRUGS (15)
  1. ERYTHROMYCIN [Suspect]
     Indication: LOWER RESPIRATORY TRACT INFECTION
     Route: 048
     Dates: start: 20070613, end: 20070618
  2. LANTHANUM CARBONATE [Suspect]
     Indication: HYPERPHOSPHATAEMIA
     Route: 048
     Dates: start: 20070504, end: 20070618
  3. ALFACALCIDOL [Concomitant]
     Indication: HYPOCALCAEMIA
     Dosage: 0.5MCG ONCE PER CYCLE
     Route: 048
  4. ALFACALCIDOL [Concomitant]
     Indication: HYPERPHOSPHATAEMIA
     Route: 048
     Dates: end: 20070618
  5. ALUMINIUM [Concomitant]
     Indication: HYPERPHOSPHATAEMIA
     Route: 048
  6. AMOXICILLIN [Concomitant]
     Indication: LOWER RESPIRATORY TRACT INFECTION
     Route: 048
     Dates: start: 20070606, end: 20070611
  7. DARBEPOETIN ALFA [Concomitant]
     Indication: ANAEMIA
     Route: 042
  8. ATORVASTATIN CALCIUM [Concomitant]
     Indication: MYOCARDIAL ISCHAEMIA
     Route: 048
     Dates: end: 20070618
  9. BUMETANIDE [Concomitant]
     Indication: FLUID OVERLOAD
     Route: 048
     Dates: end: 20070618
  10. EZETIMIBE [Concomitant]
     Indication: HYPERCHOLESTEROLAEMIA
     Route: 048
     Dates: end: 20070618
  11. LANSOPRAZOLE [Concomitant]
     Indication: GASTRIC DISORDER
     Route: 048
     Dates: end: 20070618
  12. METOLAZONE [Concomitant]
     Indication: FLUID OVERLOAD
     Route: 048
     Dates: end: 20070618
  13. NOVOLOG MIX 70/30 [Concomitant]
     Indication: INSULIN-REQUIRING TYPE 2 DIABETES MELLITUS
     Route: 058
     Dates: end: 20070618
  14. PREGABALIN [Concomitant]
     Indication: NEURALGIA
     Route: 048
     Dates: end: 20070618
  15. WARFARIN SODIUM [Concomitant]
     Indication: THROMBOSIS
     Route: 048
     Dates: end: 20070618

REACTIONS (4)
  - ALANINE AMINOTRANSFERASE INCREASED [None]
  - ASPARTATE AMINOTRANSFERASE INCREASED [None]
  - CARDIAC FAILURE CONGESTIVE [None]
  - HAEMOGLOBIN DECREASED [None]
